FAERS Safety Report 12319753 (Version 1)
Quarter: 2016Q2

REPORT INFORMATION
  Report Type: Other
  Country: GB (occurrence: GB)
  Receive Date: 20160429
  Receipt Date: 20160429
  Transmission Date: 20160815
  Serious: Yes (Other)
  Sender: FDA-Public Use
  Company Number: GB-MYLANLABS-2016M1016571

PATIENT

DRUGS (12)
  1. FOSTAIR [Concomitant]
     Active Substance: BECLOMETHASONE\FORMOTEROL
     Dosage: 2 DF, BID
     Route: 055
     Dates: start: 20151218
  2. CALCICHEW D3 [Concomitant]
     Active Substance: CALCIUM\CHOLECALCIFEROL
     Dosage: 1 DF, BID
     Dates: start: 20100127, end: 20160208
  3. SALBUTAMOL [Concomitant]
     Active Substance: ALBUTEROL
     Dosage: 2 DF, UNK
     Route: 055
     Dates: start: 20100114, end: 20160208
  4. ESTRADIOL. [Concomitant]
     Active Substance: ESTRADIOL
     Dosage: UNK (AS DIRECTED)
     Dates: start: 20130801, end: 20160208
  5. PARIET [Concomitant]
     Active Substance: RABEPRAZOLE SODIUM
     Dosage: 1 DF, QD
     Dates: start: 20141107, end: 20160208
  6. PARACETAMOL [Concomitant]
     Active Substance: ACETAMINOPHEN
     Dosage: UNK (1-2 TABLETS MAXIMUM FOUR TIMES A DAY IF REQUIRED)
     Dates: start: 20100114
  7. SODIUM ALGINATE [Concomitant]
     Active Substance: SODIUM ALGINATE
     Dosage: UNK (5ML - 10ML FOUR TIMES A DAY)
     Dates: start: 20100114, end: 20160208
  8. CLARITHROMYCIN. [Suspect]
     Active Substance: CLARITHROMYCIN
     Dosage: UNK
     Dates: start: 20160409
  9. NUTRITION 12 [Concomitant]
     Active Substance: IRON\MINERALS\VITAMINS
     Dosage: 1 DF, TID
     Dates: start: 20151214, end: 20160208
  10. DOXYCYCLINE MONOHYDRATE [Concomitant]
     Active Substance: DOXYCYCLINE
     Dosage: 1 DF, QD
     Dates: start: 20160317
  11. ERYTHROMYCIN ETHYLSUCCINATE. [Concomitant]
     Active Substance: ERYTHROMYCIN ETHYLSUCCINATE
     Dosage: 10 ML, QID (FOR 5 DAYS)
     Dates: start: 20160411
  12. SODIUM CHLORIDE. [Concomitant]
     Active Substance: SODIUM CHLORIDE
     Dosage: UNK (AS DIRECTED)
     Dates: start: 20150219

REACTIONS (1)
  - Renal pain [Recovered/Resolved]

NARRATIVE: CASE EVENT DATE: 20160409
